FAERS Safety Report 8476650-2 (Version None)
Quarter: 2012Q2

REPORT INFORMATION
  Report Type: 
  Country: None (occurrence: None)
  Receive Date: 20120628
  Receipt Date: 20120618
  Transmission Date: 20120825
  Serious: Yes (Death, Hospitalization)
  Sender: FDA-Public Use
  Company Number: GB-TEVA-344971ISR

PATIENT
  Sex: Female

DRUGS (3)
  1. WARFARIN SODIUM [Concomitant]
     Route: 048
  2. BACLOFEN [Suspect]
     Dosage: 150 MILLIGRAM;
     Route: 048
  3. FUROSEMIDE [Concomitant]
     Route: 048

REACTIONS (4)
  - MYOCARDIAL INFARCTION [None]
  - CEREBROVASCULAR ACCIDENT [None]
  - OVERDOSE [None]
  - BLOOD GLUCOSE INCREASED [None]
